FAERS Safety Report 8831674 (Version 1)
Quarter: 2012Q4

REPORT INFORMATION
  Report Type: 
  Country: US (occurrence: US)
  Receive Date: 20121009
  Receipt Date: 20121009
  Transmission Date: 20130627
  Serious: Yes (Hospitalization)
  Sender: FDA-Public Use
  Company Number: US-BAYER-2012-102713

PATIENT
  Age: 22 Year
  Sex: Female
  Weight: 72.56 kg

DRUGS (9)
  1. YAZ [Suspect]
     Dosage: UNK UNK, QD
     Route: 048
  2. YASMIN [Suspect]
  3. PROMETHAZINE [Concomitant]
     Indication: NAUSEA
     Dosage: 25 mg, 1 tablet, 6 hours PRN
     Route: 048
  4. TERBUTALINE [Concomitant]
     Dosage: 5 mg, 1 Q 6-8 hours
     Route: 048
  5. IBUPROFEN [Concomitant]
     Indication: PAIN
     Dosage: 600 mg, 1 Q 6 hours PRN
     Route: 048
  6. FERROUS SULFATE [Concomitant]
     Dosage: 325 mgs (5 grains), tablets 1, 3 times daily
     Route: 048
  7. VITAMIN C [Concomitant]
     Dosage: 500 mg, tablets 1 twice daily
     Route: 048
  8. STOOL SOFTENER [Concomitant]
     Dosage: 1 capsule daily
     Route: 048
  9. SENNA LAX (INTERPRETED AS LAXATIVE) TABLETS [Concomitant]
     Indication: CONSTIPATION
     Dosage: 1 Q day
     Route: 048

REACTIONS (1)
  - Deep vein thrombosis [None]
